FAERS Safety Report 18263925 (Version 2)
Quarter: 2020Q3

REPORT INFORMATION
  Report Type: Report from Study
  Country: DK (occurrence: DK)
  Receive Date: 20200914
  Receipt Date: 20200928
  Transmission Date: 20201103
  Serious: Yes (Hospitalization)
  Sender: FDA-Public Use
  Company Number: DK-AMGEN-DNKCT2020146373

PATIENT
  Age: 10 Year
  Sex: Male
  Weight: 38.2 kg

DRUGS (33)
  1. ERWINIA [Concomitant]
     Active Substance: ASPARAGINASE ERWINIA CHRYSANTHEMI
     Dosage: 29500 INTERNATIONAL UNIT
     Dates: start: 20200807
  2. CYTARABINE. [Concomitant]
     Active Substance: CYTARABINE
     Dosage: 88.5 MILLIGRAM
     Route: 042
     Dates: start: 20200903
  3. CASPOFUNGIN [Concomitant]
     Active Substance: CASPOFUNGIN
     Dosage: 50?60 MILLIGRAM
     Route: 042
     Dates: start: 20200807, end: 20200822
  4. METOPROLOL SUCCINATE. [Concomitant]
     Active Substance: METOPROLOL SUCCINATE
     Dosage: 50 MILLIGRAM
     Route: 048
     Dates: start: 20200810, end: 20200814
  5. DARROW LIQ GLUCOSE [Concomitant]
     Active Substance: DEXTROSE\POTASSIUM CHLORIDE\SODIUM CHLORIDE\SODIUM CITRATE
     Dosage: 125 MILLILITER
     Route: 042
     Dates: start: 20200731
  6. MERCAPTOPURIN [Concomitant]
     Active Substance: MERCAPTOPURINE
     Dosage: 75 MILLIGRAM
     Route: 048
     Dates: start: 20130528, end: 20200912
  7. METHOTREXAT [METHOTREXATE] [Concomitant]
     Active Substance: METHOTREXATE
     Dosage: 15 MILLIGRAM
     Route: 037
     Dates: start: 20130429
  8. CYCLOPHOSPHAMIDE. [Concomitant]
     Active Substance: CYCLOPHOSPHAMIDE
     Dosage: 1180 MILLIGRAM
     Dates: start: 20130910
  9. ESOMEPRAZOL [ESOMEPRAZOLE] [Concomitant]
     Active Substance: ESOMEPRAZOLE
     Dosage: 20 MILLIGRAM
     Route: 048
     Dates: start: 20200801, end: 20200819
  10. MEROPENEM. [Concomitant]
     Active Substance: MEROPENEM
     Dosage: 800 MILLIGRAM
     Route: 042
     Dates: start: 20200813, end: 20200819
  11. LIDOCAIN [LIDOCAINE] [Concomitant]
     Active Substance: LIDOCAINE
     Dosage: 10 UNK
     Route: 058
     Dates: start: 20200730
  12. POSACONAZOL [Concomitant]
     Active Substance: POSACONAZOLE
     Dosage: 300 MILLIGRAM
     Route: 048
     Dates: start: 20200824
  13. CLEMASTINE [Concomitant]
     Active Substance: CLEMASTINE
     Dosage: 0.75 MILLIGRAM
     Route: 042
     Dates: start: 20200821, end: 20200821
  14. FUROSEMID [FUROSEMIDE] [Concomitant]
     Active Substance: FUROSEMIDE
     Dosage: 10 UNK AND 10 MILLIGRAM
     Dates: start: 20200730, end: 20200903
  15. VINCRISTINE [Concomitant]
     Active Substance: VINCRISTINE
     Dosage: 1.725?1.755 MILLIGRAM
     Dates: start: 20130430
  16. BUPIVACAIN [Concomitant]
     Active Substance: BUPIVACAINE
     Dosage: 2.5 UNK
     Route: 058
     Dates: start: 20200730
  17. MACROGOL [Concomitant]
     Active Substance: POLYETHYLENE GLYCOLS
     Dosage: 1 UNK
     Route: 048
     Dates: start: 20200731, end: 20200819
  18. UNIKALK SILVER [Concomitant]
     Dosage: 1 UNK
     Route: 048
     Dates: start: 20200803
  19. METHOTREXATE. [Concomitant]
     Active Substance: METHOTREXATE
     Dosage: 15 MILLIGRAM
     Route: 037
     Dates: start: 20200807, end: 20200917
  20. DEXAMETHASONE. [Suspect]
     Active Substance: DEXAMETHASONE
     Indication: ACUTE LYMPHOCYTIC LEUKAEMIA
     Dosage: 3.5 MILLIGRAM
     Route: 065
     Dates: start: 20130430
  21. SULFAMETHOXAZOLE;TRIMETHOPRIM [Concomitant]
     Active Substance: SULFAMETHOXAZOLE\TRIMETHOPRIM
     Dosage: 1 UNK
     Route: 048
     Dates: start: 20200802
  22. ONDANSETRON [Concomitant]
     Active Substance: ONDANSETRON
     Dosage: 6 MILLIGRAM
     Route: 048
     Dates: start: 20200806
  23. PROPOFOL. [Concomitant]
     Active Substance: PROPOFOL
     Dosage: 5?10 UNK
     Route: 042
     Dates: start: 20200730
  24. PIPERACILLIN/TAZOBACTAM [Concomitant]
     Active Substance: PIPERACILLIN SODIUM\TAZOBACTAM SODIUM
     Dosage: 4 GRAM
     Route: 042
     Dates: start: 20200730, end: 20200813
  25. METOPIMAZINE [Concomitant]
     Active Substance: METOPIMAZINE
     Dosage: 7.5 MILLIGRAM
     Route: 048
     Dates: start: 20200804
  26. DAUNORUBICIN [Concomitant]
     Active Substance: DAUNORUBICIN
     Dosage: UNK AND 28.75?29.25 MILLIGRAM
     Dates: start: 20130806
  27. PHOSPHORUS [Concomitant]
     Active Substance: PHOSPHORUS
     Dosage: 2 UNK
     Route: 048
     Dates: start: 20200803, end: 20200810
  28. NIFEDIPIN [Concomitant]
     Active Substance: NIFEDIPINE
     Dosage: 10?30 MILLIGRAM
     Route: 048
     Dates: start: 20200808
  29. HUMAN ALBUMIN [Concomitant]
     Active Substance: ALBUMIN HUMAN
     Dosage: 200 MILLILITER
     Route: 042
     Dates: start: 20200808, end: 20200808
  30. PARACETAMOL [Concomitant]
     Active Substance: ACETAMINOPHEN
     Dosage: 10 UNK AND  500 MILLIGRAM
     Dates: start: 20200730
  31. CARFILZOMIB [Suspect]
     Active Substance: CARFILZOMIB
     Indication: ACUTE LYMPHOCYTIC LEUKAEMIA
     Dosage: 66.08 MILLIGRAM, PER CHEMO REGIM
     Route: 042
     Dates: start: 20200731
  32. FENTANYL. [Concomitant]
     Active Substance: FENTANYL
     Dosage: 50 UNK
     Route: 042
     Dates: start: 20200730
  33. HYDROCORTISON [HYDROCORTISONE] [Concomitant]
     Dosage: 2.5 MILLIGRAM
     Route: 048
     Dates: start: 20200821

REACTIONS (1)
  - Dyspnoea at rest [Recovered/Resolved]

NARRATIVE: CASE EVENT DATE: 20200906
